FAERS Safety Report 9372387 (Version 2)
Quarter: 2013Q3

REPORT INFORMATION
  Report Type: Spontaneous
  Country: NL (occurrence: NL)
  Receive Date: 20130627
  Receipt Date: 20130730
  Transmission Date: 20140515
  Serious: Yes (Hospitalization, Other)
  Sender: FDA-Public Use
  Company Number: NL-AMGEN-NLDSP2013044778

PATIENT
  Age: 64 Year
  Sex: Male

DRUGS (10)
  1. ARANESP [Suspect]
     Indication: ANAEMIA
     Dosage: 500 MUG, Q3WK
     Route: 058
     Dates: start: 20130418
  2. GEMCITABINE [Concomitant]
     Indication: MESOTHELIOMA
     Dosage: 2300 MG, Q3WK
     Route: 042
     Dates: start: 20130417, end: 20130618
  3. CARBOPLATIN [Concomitant]
     Indication: MESOTHELIOMA
     Dosage: 430 MG, Q3WK
     Route: 042
     Dates: start: 20130417, end: 20130618
  4. OXYNORM [Concomitant]
     Indication: PAIN
     Dosage: 10 MG, AS NECESSARY
     Route: 048
     Dates: start: 20130327
  5. EMEND                              /01627301/ [Concomitant]
     Dosage: 125 MG, DAY 1, DAY 2+3
     Dates: start: 20130617, end: 20130620
  6. TEMAZEPAM [Concomitant]
     Dosage: 20 MG, UNK
  7. OXYCONTIN [Concomitant]
     Dosage: 10 MG, BID
  8. PANTOZOL                           /01263204/ [Concomitant]
     Dosage: 40 MG, QD
  9. MOVICOLON [Concomitant]
     Dosage: UNK UNK, QD
  10. AMITRIPTYLINE [Concomitant]

REACTIONS (11)
  - Transient ischaemic attack [Recovered/Resolved]
  - Monoplegia [Unknown]
  - Confusional state [Unknown]
  - Cerebral disorder [Not Recovered/Not Resolved]
  - Dysarthria [Unknown]
  - Somnolence [Unknown]
  - Cerebrovascular accident [Unknown]
  - Cerebral infarction [Unknown]
  - Neurological decompensation [Unknown]
  - Aphasia [Unknown]
  - Malaise [Unknown]
